FAERS Safety Report 18300759 (Version 2)
Quarter: 2021Q1

REPORT INFORMATION
  Report Type: Spontaneous
  Country: US (occurrence: US)
  Receive Date: 20200923
  Receipt Date: 20210316
  Transmission Date: 20210419
  Serious: Yes (Death, Other)
  Sender: FDA-Public Use
  Company Number: US-SA-2020SA257813

PATIENT
  Age: 56 Year
  Sex: Female

DRUGS (1)
  1. ZANTAC [Suspect]
     Active Substance: RANITIDINE HYDROCHLORIDE
     Indication: DYSPEPSIA
     Dosage: UNK, FREQUENCY: OTHER
     Dates: start: 201101, end: 201304

REACTIONS (2)
  - Gastric cancer [Unknown]
  - Gastrointestinal carcinoma [Fatal]

NARRATIVE: CASE EVENT DATE: 201304
